FAERS Safety Report 6463384-9 (Version None)
Quarter: 2009Q4

REPORT INFORMATION
  Report Type: 
  Country: None (occurrence: None)
  Receive Date: 20091201
  Receipt Date: 20090901
  Transmission Date: 20100525
  Serious: Yes (Hospitalization)
  Sender: FDA-Public Use
  Company Number: US-AMGEN-QUU360830

PATIENT
  Sex: Female
  Weight: 52.2 kg

DRUGS (1)
  1. ENBREL [Suspect]
     Indication: RHEUMATOID ARTHRITIS
     Route: 058
     Dates: start: 20040101

REACTIONS (5)
  - ARTHRALGIA [None]
  - FATIGUE [None]
  - HEADACHE [None]
  - INFECTED BUNION [None]
  - STAPHYLOCOCCAL INFECTION [None]
